FAERS Safety Report 9232695 (Version 1)
Quarter: 2013Q2

REPORT INFORMATION
  Report Type: Spontaneous
  Country: KR (occurrence: None)
  Receive Date: 20130412
  Receipt Date: 20130412
  Transmission Date: 20140414
  Serious: Yes (Hospitalization)
  Sender: FDA-Public Use
  Company Number: VAL_02274_2013

PATIENT
  Age: 68 Year
  Sex: Male

DRUGS (3)
  1. CARBAMAZEPINE [Suspect]
     Indication: PAIN IN JAW
     Dosage: 200 MG TID, DF
  2. TRAMADOL AND ACETAMINOPHEN [Suspect]
     Indication: PAIN IN JAW
     Dosage: 1 DF TID 37.5 MG/325 MG
  3. NORTRIPTYLINE (NORTRIPTYLINE) [Suspect]
     Indication: PAIN IN JAW

REACTIONS (6)
  - Stevens-Johnson syndrome [None]
  - Pyrexia [None]
  - Asthenia [None]
  - Pharyngitis [None]
  - Leukocytosis [None]
  - Blood potassium increased [None]
